FAERS Safety Report 19755629 (Version 1)
Quarter: 2021Q3

REPORT INFORMATION
  Report Type: Spontaneous
  Country: NL (occurrence: NL)
  Receive Date: 20210827
  Receipt Date: 20210827
  Transmission Date: 20211014
  Serious: Yes (Other)
  Sender: FDA-Public Use
  Company Number: NL-TEVA-2021-NL-1945471

PATIENT
  Sex: Male

DRUGS (1)
  1. SALBUTAMOL CYCLOCAPS [Suspect]
     Active Substance: ALBUTEROL

REACTIONS (1)
  - Foreign body aspiration [Unknown]
